FAERS Safety Report 14634380 (Version 1)
Quarter: 2018Q1

REPORT INFORMATION
  Report Type: Report from Study
  Country: IE (occurrence: IE)
  Receive Date: 20180314
  Receipt Date: 20180314
  Transmission Date: 20180509
  Serious: Yes (Other)
  Sender: FDA-Public Use
  Company Number: IE-AMGEN-IRLSL2018032950

PATIENT
  Age: 85 Year
  Sex: Male

DRUGS (9)
  1. DESUNIN [Concomitant]
     Active Substance: CHOLECALCIFEROL
     Dosage: 1600 UNK, QD
  2. SIMVASTATIN. [Concomitant]
     Active Substance: SIMVASTATIN
     Dosage: 40 MG, QD
  3. RANITIC [Concomitant]
     Active Substance: RANITIDINE HYDROCHLORIDE
     Dosage: 300 MG, QD
  4. LANOXIN [Concomitant]
     Active Substance: DIGOXIN
     Dosage: 62.5 MG, QD
  5. ASPRIN [Concomitant]
     Active Substance: ASPIRIN
     Dosage: 75 MG, QD
  6. WARFIN [Concomitant]
     Active Substance: WARFARIN
     Dosage: 1 MG, QD
  7. CYTACON [Concomitant]
     Dosage: 4 MUG, QD
  8. ARANESP [Suspect]
     Active Substance: DARBEPOETIN ALFA
     Indication: CHRONIC KIDNEY DISEASE
     Dosage: 30 MUG, Q2WK
     Route: 058
     Dates: start: 20171205
  9. FUROSEMIDE. [Concomitant]
     Active Substance: FUROSEMIDE
     Dosage: 40 MG, QOD

REACTIONS (1)
  - Cellulitis [Not Recovered/Not Resolved]
